FAERS Safety Report 8389295-X (Version None)
Quarter: 2012Q2

REPORT INFORMATION
  Report Type: 
  Country: None (occurrence: None)
  Receive Date: 20120528
  Receipt Date: 20120516
  Transmission Date: 20120825
  Serious: Yes (Hospitalization)
  Sender: FDA-Public Use
  Company Number: GB-BAYER-2012-050005

PATIENT
  Age: 75 Year
  Sex: Male

DRUGS (7)
  1. NAPROXEN SODIUM [Suspect]
     Dosage: 250 MG, UNK
     Route: 048
     Dates: start: 20120426, end: 20120428
  2. FINASTERIDE [Concomitant]
  3. METFFORMIN HYDROCHLORIDE [Concomitant]
  4. ALFUZOSIN HYDROCHLORIDE [Concomitant]
  5. OMEPRAZOLE [Concomitant]
  6. SIMVASTATIN [Concomitant]
  7. WARFARIN SODIUM [Concomitant]

REACTIONS (3)
  - BLOOD CREATININE INCREASED [None]
  - RENAL FAILURE ACUTE [None]
  - ANURIA [None]
